FAERS Safety Report 6249127-2 (Version None)
Quarter: 2009Q2

REPORT INFORMATION
  Report Type: 
  Country: None (occurrence: None)
  Receive Date: 20090624
  Receipt Date: 20090624
  Transmission Date: 20091009
  Serious: Yes (Other)
  Sender: FDA-Public Use
  Company Number: None

PATIENT
  Age: 45 Year
  Sex: Female
  Weight: 65.7716 kg

DRUGS (1)
  1. FLECTOR [Suspect]
     Indication: LIGAMENT RUPTURE
     Dosage: 1 - 12 HOURS - TOP
     Route: 061
     Dates: start: 20090623, end: 20090623

REACTIONS (5)
  - HEART RATE IRREGULAR [None]
  - MALAISE [None]
  - NAUSEA [None]
  - TREATMENT NONCOMPLIANCE [None]
  - TREMOR [None]
